FAERS Safety Report 21273299 (Version 2)
Quarter: 2022Q4

REPORT INFORMATION
  Report Type: Spontaneous
  Country: JP (occurrence: JP)
  Receive Date: 20220831
  Receipt Date: 20221020
  Transmission Date: 20230113
  Serious: Yes (Death, Hospitalization, Other)
  Sender: FDA-Public Use
  Company Number: JP-MSD-2208JPN003151J

PATIENT
  Age: 77 Year
  Sex: Male
  Weight: 50 kg

DRUGS (9)
  1. KEYTRUDA [Suspect]
     Active Substance: PEMBROLIZUMAB
     Indication: Transitional cell carcinoma
     Dosage: 200 MILLIGRAM, ONCE
     Route: 041
     Dates: start: 20220627, end: 20220627
  2. CALONAL [Concomitant]
     Active Substance: ACETAMINOPHEN
     Dosage: 500 MILLIGRAM, TID
     Route: 048
     Dates: start: 20220616, end: 20220721
  3. OXYCONTIN [Concomitant]
     Active Substance: OXYCODONE HYDROCHLORIDE
     Dosage: 5 MILLIGRAM, BID
     Route: 048
     Dates: start: 20220615, end: 20220718
  4. OXYCODONE HYDROCHLORIDE [Concomitant]
     Active Substance: OXYCODONE HYDROCHLORIDE
     Dosage: 2.5 MILLIGRAM, PRN
     Route: 048
     Dates: start: 20220614, end: 20220718
  5. MIGLITOL [Concomitant]
     Active Substance: MIGLITOL
     Dosage: 50 MILLIGRAM, TID
     Route: 048
     Dates: end: 20220702
  6. METFORMIN HYDROCHLORIDE [Concomitant]
     Active Substance: METFORMIN HYDROCHLORIDE
     Dosage: 500 MILLIGRAM, BID
     Route: 048
     Dates: end: 20220702
  7. GLIMEPIRIDE [Concomitant]
     Active Substance: GLIMEPIRIDE
     Dosage: 1 MILLIGRAM, QD
     Route: 048
     Dates: end: 20220722
  8. MAGNESIUM OXIDE [Concomitant]
     Active Substance: MAGNESIUM OXIDE
     Dosage: 660 MILLIGRAM, TID
     Route: 048
     Dates: end: 20220721
  9. PANTETHINE [Concomitant]
     Active Substance: PANTETHINE
     Dosage: 1 GRAM, TID
     Route: 048
     Dates: end: 20220721

REACTIONS (1)
  - Immune-mediated hepatic disorder [Fatal]

NARRATIVE: CASE EVENT DATE: 20220704
